FAERS Safety Report 16754619 (Version 2)
Quarter: 2019Q4

REPORT INFORMATION
  Report Type: Spontaneous
  Country: TW (occurrence: TW)
  Receive Date: 20190829
  Receipt Date: 20191001
  Transmission Date: 20200122
  Serious: Yes (Death, Hospitalization, Other)
  Sender: FDA-Public Use
  Company Number: TW-AMGEN-TWNSP2019138078

PATIENT
  Age: 85 Year
  Sex: Female

DRUGS (1)
  1. ENBREL [Suspect]
     Active Substance: ETANERCEPT
     Indication: RHEUMATOID ARTHRITIS
     Dosage: 25 MILLIGRAM, CYCLICAL (Q5D)
     Route: 058
     Dates: start: 20120220

REACTIONS (4)
  - Death [Fatal]
  - Cardiac failure [Recovered/Resolved with Sequelae]
  - Respiratory failure [Recovered/Resolved]
  - Hypoxia [Recovered/Resolved]
